FAERS Safety Report 17665441 (Version 8)
Quarter: 2020Q4

REPORT INFORMATION
  Report Type: Spontaneous
  Country: US (occurrence: US)
  Receive Date: 20200414
  Receipt Date: 20201217
  Transmission Date: 20210113
  Serious: No
  Sender: FDA-Public Use
  Company Number: US-VERTEX PHARMACEUTICALS-2020-008349

PATIENT
  Age: 27 Year
  Sex: Female

DRUGS (4)
  1. BEYAZ [Concomitant]
     Active Substance: DROSPIRENONE\ETHINYL ESTRADIOL\LEVOMEFOLATE CALCIUM
     Dosage: UNK
     Dates: end: 20200407
  2. TRIKAFTA [Suspect]
     Active Substance: ELEXACAFTOR\IVACAFTOR\TEZACAFTOR
     Indication: CYSTIC FIBROSIS
     Dosage: 2 TABS (100 MG ELEXACAFTOR/50 MG TEZACAFTOR/75 MG IVACAFTOR) AM; 1 TAB (150 MG IVACAFTOR) PM
     Route: 048
     Dates: start: 20200326, end: 2020
  3. TRIKAFTA [Suspect]
     Active Substance: ELEXACAFTOR\IVACAFTOR\TEZACAFTOR
     Dosage: 2 TABS (100 MG ELEXACAFTOR/50 MG TEZACAFTOR/75 MG IVACAFTOR) AM; 1 TAB (150 MG IVACAFTOR) PM
     Route: 048
     Dates: start: 20201014
  4. TRIKAFTA [Suspect]
     Active Substance: ELEXACAFTOR\IVACAFTOR\TEZACAFTOR
     Dosage: 2 TABS (100 MG ELEXACAFTOR/50 MG TEZACAFTOR/75 MG IVACAFTOR) AM; 1 TAB (150 MG IVACAFTOR) PM
     Route: 048
     Dates: start: 2020, end: 20200728

REACTIONS (7)
  - Rash [Recovered/Resolved]
  - Diarrhoea [Unknown]
  - Dyspepsia [Unknown]
  - Paranasal sinus hypersecretion [Not Recovered/Not Resolved]
  - Faeces soft [Not Recovered/Not Resolved]
  - Dairy intolerance [Not Recovered/Not Resolved]
  - Salivary hypersecretion [Unknown]

NARRATIVE: CASE EVENT DATE: 2020
